FAERS Safety Report 4789554-3 (Version None)
Quarter: 2005Q4

REPORT INFORMATION
  Report Type: 
  Country: None (occurrence: None)
  Receive Date: 20051006
  Receipt Date: 20050926
  Transmission Date: 20060501
  Serious: Yes (Other)
  Sender: FDA-Public Use
  Company Number: US-JNJFOC-20050906425

PATIENT
  Sex: Female
  Weight: 40.82 kg

DRUGS (5)
  1. REMICADE [Suspect]
     Route: 042
  2. REMICADE [Suspect]
     Indication: CROHN'S DISEASE
     Route: 042
  3. PREDNISONE [Concomitant]
  4. IMURAN [Concomitant]
  5. ACIPHEX [Concomitant]

REACTIONS (4)
  - ARTHRITIS [None]
  - OEDEMA PERIPHERAL [None]
  - SCLERITIS [None]
  - THERAPEUTIC RESPONSE DECREASED [None]
